FAERS Safety Report 6209796-X (Version None)
Quarter: 2009Q2

REPORT INFORMATION
  Report Type: 
  Country: None (occurrence: None)
  Receive Date: 20090601
  Receipt Date: 20090521
  Transmission Date: 20091009
  Serious: Yes (Other)
  Sender: FDA-Public Use
  Company Number: PHHY2009JP20384

PATIENT
  Sex: Female

DRUGS (1)
  1. FEMARA [Suspect]
     Indication: INFERTILITY
     Dosage: UNK
     Route: 048

REACTIONS (1)
  - HERPES ZOSTER [None]
